FAERS Safety Report 6555505-4 (Version None)
Quarter: 2010Q1

REPORT INFORMATION
  Report Type: 
  Country: None (occurrence: None)
  Receive Date: 20100128
  Receipt Date: 20100127
  Transmission Date: 20100710
  Serious: Yes (Hospitalization)
  Sender: FDA-Public Use
  Company Number: JP-ROCHE-679273

PATIENT
  Sex: Female
  Weight: 53 kg

DRUGS (14)
  1. TAMIFLU [Suspect]
     Indication: INFLUENZA
     Route: 048
     Dates: start: 20091216, end: 20091217
  2. TAKEPRON [Suspect]
     Indication: PROPHYLAXIS
     Dosage: DOSAGE FORM: ORAL FORMULATION.
     Route: 048
     Dates: start: 20091001
  3. BAKTAR [Suspect]
     Indication: PROPHYLAXIS
     Dosage: DOSAGE FORM: ORAL FORMULATION.
     Route: 048
     Dates: start: 20091013
  4. ITRIZOLE [Suspect]
     Indication: PROPHYLAXIS
     Route: 048
     Dates: start: 20091016
  5. PERSANTINE [Suspect]
     Indication: SYSTEMIC LUPUS ERYTHEMATOSUS
     Route: 048
     Dates: start: 20091016
  6. BONALON [Suspect]
     Indication: PROPHYLAXIS
     Route: 048
     Dates: start: 20091023
  7. CRESTOR [Suspect]
     Indication: HYPERCHOLESTEROLAEMIA
     Route: 048
     Dates: start: 20091027
  8. CELLCEPT [Suspect]
     Indication: SYSTEMIC LUPUS ERYTHEMATOSUS
     Route: 048
     Dates: start: 20091028, end: 20091028
  9. CELLCEPT [Suspect]
     Route: 048
     Dates: start: 20091106, end: 20091106
  10. ZETIA [Suspect]
     Indication: HYPERCHOLESTEROLAEMIA
     Route: 048
     Dates: start: 20091129
  11. COCARL [Suspect]
     Indication: DRUG USE FOR UNKNOWN INDICATION
     Dosage: DOSAGE FORM: ORAL FORMULATION
     Route: 048
     Dates: start: 20091216, end: 20091217
  12. MEDICON [Suspect]
     Indication: DRUG USE FOR UNKNOWN INDICATION
     Dosage: DOSAGE FORM: ORAL FORMULATION
     Route: 048
     Dates: start: 20091216, end: 20091217
  13. MUCODYNE [Suspect]
     Indication: DRUG USE FOR UNKNOWN INDICATION
     Dosage: DOSAGE FORM: ORAL FORMULATION
     Route: 048
     Dates: start: 20091216, end: 20091217
  14. PREDONINE [Concomitant]
     Route: 048
     Dates: start: 20091004

REACTIONS (2)
  - AGRANULOCYTOSIS [None]
  - PNEUMONIA [None]
